FAERS Safety Report 12628831 (Version 1)
Quarter: 2016Q3

REPORT INFORMATION
  Report Type: Spontaneous
  Country: US (occurrence: US)
  Receive Date: 20160808
  Receipt Date: 20160808
  Transmission Date: 20161109
  Serious: Yes (Other)
  Sender: FDA-Public Use
  Company Number: US-009507513-1608USA003235

PATIENT
  Sex: Male

DRUGS (9)
  1. AMITRIPTYLINE HYDROCHLORIDE. [Suspect]
     Active Substance: AMITRIPTYLINE HYDROCHLORIDE
     Indication: INSOMNIA
  2. SIMVASTATIN. [Suspect]
     Active Substance: SIMVASTATIN
     Indication: NEPHRECTOMY
  3. NEURONTIN [Suspect]
     Active Substance: GABAPENTIN
     Indication: NEURALGIA
     Dosage: 300 MG, QID
     Dates: start: 2007
  4. LORAZEPAM. [Suspect]
     Active Substance: LORAZEPAM
     Indication: ANXIETY
  5. SIMVASTATIN. [Suspect]
     Active Substance: SIMVASTATIN
     Indication: CHRONIC KIDNEY DISEASE
     Dosage: 40 MG, QD
     Route: 048
     Dates: start: 2011
  6. GLIMEPIRIDE. [Suspect]
     Active Substance: GLIMEPIRIDE
     Indication: DIABETES MELLITUS
     Dosage: 1 MG, QD
     Dates: start: 2013
  7. AMITRIPTYLINE HYDROCHLORIDE. [Suspect]
     Active Substance: AMITRIPTYLINE HYDROCHLORIDE
     Indication: DEPRESSION
     Dosage: 100 MG, AT BEDTIME
     Route: 048
     Dates: start: 1986
  8. LEVOTHYROXINE SODIUM. [Suspect]
     Active Substance: LEVOTHYROXINE SODIUM
     Indication: THYROID DISORDER
     Dosage: 100 MICROGRAM, QD
     Route: 048
     Dates: start: 2008
  9. LORAZEPAM. [Suspect]
     Active Substance: LORAZEPAM
     Indication: DIZZINESS
     Dosage: 0.5 MG, QID
     Dates: start: 1986

REACTIONS (5)
  - Renal failure [Unknown]
  - Arthralgia [Unknown]
  - Pain in extremity [Unknown]
  - Malaise [Unknown]
  - Migraine [Unknown]
